FAERS Safety Report 23149684 (Version 2)
Quarter: 2023Q4

REPORT INFORMATION
  Report Type: Spontaneous
  Country: GR (occurrence: GR)
  Receive Date: 20231106
  Receipt Date: 20231204
  Transmission Date: 20240110
  Serious: Yes (Hospitalization, Other)
  Sender: FDA-Public Use
  Company Number: GR-PFIZER INC-202300350592

PATIENT
  Age: 65 Year
  Sex: Male

DRUGS (6)
  1. XALKORI [Suspect]
     Active Substance: CRIZOTINIB
     Indication: Non-small cell lung cancer stage III
     Dosage: AT 9:00 IN THE MORNING AND 21:00 IN THE EVENING
     Dates: start: 20230922
  2. PANTOPRAZOLE [Concomitant]
     Active Substance: PANTOPRAZOLE
     Dosage: AT 5:00 IN THE MORNING
  3. DEXAMETHASONE [Concomitant]
     Active Substance: DEXAMETHASONE
     Indication: Brain oedema
     Dosage: 4 MG, 1X/DAY (6:00 IN THE MORNING )
     Dates: start: 20230829
  4. DEXAMETHASONE [Concomitant]
     Active Substance: DEXAMETHASONE
     Dosage: 3 MG
     Dates: start: 20231017
  5. DEXAMETHASONE [Concomitant]
     Active Substance: DEXAMETHASONE
     Dosage: 1.5 MG
     Dates: start: 20231022
  6. DIMENHYDRINATE [Concomitant]
     Active Substance: DIMENHYDRINATE
     Indication: Vertigo
     Dosage: UNK, AS NEEDED

REACTIONS (2)
  - Hepatic enzyme increased [Unknown]
  - Pneumonia staphylococcal [Unknown]

NARRATIVE: CASE EVENT DATE: 20231010
